FAERS Safety Report 6011751-X (Version None)
Quarter: 2008Q4

REPORT INFORMATION
  Report Type: 
  Country: None (occurrence: None)
  Receive Date: 20081218
  Receipt Date: 20070418
  Transmission Date: 20090506
  Serious: Yes (Other)
  Sender: FDA-Public Use
  Company Number: JP-ROCHE-489077

PATIENT
  Sex: Female
  Weight: 22 kg

DRUGS (9)
  1. TAMIFLU [Suspect]
     Dosage: FORM: DRY SYRUP.
     Route: 048
     Dates: start: 20070312, end: 20070312
  2. TAMIFLU [Suspect]
     Route: 048
     Dates: start: 20070313, end: 20070316
  3. TAMIFLU [Suspect]
     Route: 048
     Dates: start: 20070317
  4. MEDICON [Concomitant]
     Route: 048
     Dates: start: 20070312, end: 20070317
  5. SP [Concomitant]
     Dosage: FORM:LOZENGE.
     Route: 048
     Dates: start: 20070312, end: 20070317
  6. HUSCODE [Concomitant]
     Route: 048
     Dates: start: 20070312, end: 20070316
  7. ANHIBA [Concomitant]
     Route: 054
  8. AZUNOL [Concomitant]
     Dosage: DOSE FORM: GARGLE. ROUTE: OROPHARYNGEAL.
     Route: 050
  9. CALONAL [Concomitant]
     Dosage: DOSE FORM: FINE GRANULE.
     Route: 048
     Dates: start: 20070312, end: 20070317

REACTIONS (1)
  - HALLUCINATION [None]
